FAERS Safety Report 5005724-3 (Version None)
Quarter: 2006Q2

REPORT INFORMATION
  Report Type: 
  Country: None (occurrence: None)
  Receive Date: 20060516
  Receipt Date: 20060426
  Transmission Date: 20061013
  Serious: Yes (Hospitalization)
  Sender: FDA-Public Use
  Company Number: US200604004493

PATIENT
  Age: 85 Year
  Sex: Female

DRUGS (13)
  1. HUMALOG PEN [Suspect]
     Indication: DIABETES MELLITUS NON-INSULIN-DEPENDENT
     Dosage: 5 U, 3/D
     Dates: start: 20050101
  2. METFORMIN [Concomitant]
  3. GLYBURDIE (GLIBENICLAMIDE) [Concomitant]
  4. PREDNISONE TAB [Concomitant]
  5. LANTUS [Concomitant]
  6. METHOTREXATE [Concomitant]
  7. SYNTHROID [Concomitant]
  8. PROCRIT [Concomitant]
  9. PRILOSEC [Concomitant]
  10. ZETIA [Concomitant]
  11. LOPID [Concomitant]
  12. TRINSICON (ASCORBIC ACID, CYANCOCOBALAMIN, CYANOCOBALAMIN WITH INTRINS [Concomitant]
  13. FUROSEMIDE [Concomitant]

REACTIONS (20)
  - ACTIVITIES OF DAILY LIVING IMPAIRED [None]
  - ASTHENIA [None]
  - ASTHENOPIA [None]
  - BLOOD GLUCOSE DECREASED [None]
  - CELLULITIS [None]
  - DEHYDRATION [None]
  - DRUG INEFFECTIVE [None]
  - DRUG INTERACTION [None]
  - FATIGUE [None]
  - FEELING ABNORMAL [None]
  - HAEMATOCRIT DECREASED [None]
  - HYPERHIDROSIS [None]
  - HYPOTHYROIDISM [None]
  - INFLUENZA [None]
  - JOINT SWELLING [None]
  - PHARMACEUTICAL PRODUCT COMPLAINT [None]
  - RECTAL HAEMORRHAGE [None]
  - RHEUMATOID ARTHRITIS [None]
  - STREPTOCOCCAL INFECTION [None]
  - TREMOR [None]
